FAERS Safety Report 24156270 (Version 1)
Quarter: 2024Q3

REPORT INFORMATION
  Report Type: Spontaneous
  Country: US (occurrence: US)
  Receive Date: 20240731
  Receipt Date: 20240731
  Transmission Date: 20241017
  Serious: No
  Sender: PL DEVELOPMENTS
  Company Number: US-P+L Developments of Newyork Corporation-2159823

PATIENT
  Sex: Female

DRUGS (5)
  1. DOCOSANOL [Suspect]
     Active Substance: DOCOSANOL
     Indication: Eczema
     Route: 065
  2. DOCOSANOL [Suspect]
     Active Substance: DOCOSANOL
     Indication: Oral herpes
  3. DOCOSANOL [Suspect]
     Active Substance: DOCOSANOL
     Indication: Lip dry
  4. DOCOSANOL [Suspect]
     Active Substance: DOCOSANOL
     Indication: Chapped lips
  5. DOCOSANOL [Suspect]
     Active Substance: DOCOSANOL
     Indication: Dry skin

REACTIONS (1)
  - Drug effective for unapproved indication [Unknown]
